FAERS Safety Report 11892067 (Version 2)
Quarter: 2016Q1

REPORT INFORMATION
  Report Type: Spontaneous
  Country: JP (occurrence: JP)
  Receive Date: 20160106
  Receipt Date: 20160216
  Transmission Date: 20160526
  Serious: Yes (Hospitalization)
  Sender: FDA-Public Use
  Company Number: JP-CELGENE-JPN-2015121421

PATIENT
  Age: 66 Year
  Sex: Male

DRUGS (14)
  1. LENADEX [Suspect]
     Active Substance: DEXAMETHASONE ACETATE
     Indication: PLASMA CELL MYELOMA
     Dosage: 20 MILLIGRAM
     Route: 048
     Dates: start: 20150709, end: 20151116
  2. REVLIMID [Suspect]
     Active Substance: LENALIDOMIDE
     Indication: PLASMA CELL MYELOMA
     Dosage: 25 MILLIGRAM
     Route: 048
     Dates: start: 20151015, end: 20151121
  3. BAKTAR [Concomitant]
     Active Substance: SULFAMETHOXAZOLE\TRIMETHOPRIM
     Indication: PROPHYLAXIS
     Dosage: 1 DOSAGE FORMS
     Route: 048
     Dates: start: 20150608, end: 20151121
  4. PANTETHINE [Suspect]
     Active Substance: PANTETHINE
     Indication: PROPHYLAXIS
     Dosage: 9 GRAM
     Route: 048
     Dates: start: 20150629, end: 20151121
  5. LASIX [Suspect]
     Active Substance: FUROSEMIDE
     Indication: PROPHYLAXIS
     Dosage: 20 MILLIGRAM
     Route: 048
     Dates: start: 20150619, end: 20150623
  6. LYRICA [Suspect]
     Active Substance: PREGABALIN
     Indication: BENIGN PROSTATIC HYPERPLASIA
     Dosage: 300 MILLIGRAM
     Route: 048
     Dates: start: 20151006, end: 20151121
  7. METHYCOBAL [Suspect]
     Active Substance: METHYLCOBALAMIN
     Indication: BENIGN PROSTATIC HYPERPLASIA
     Dosage: 450 MICROGRAM
     Route: 048
     Dates: start: 20151006, end: 20151121
  8. ALLOPURINOL. [Suspect]
     Active Substance: ALLOPURINOL
     Indication: PROPHYLAXIS
     Dosage: 100 MILLIGRAM
     Route: 048
     Dates: start: 20150616, end: 20150623
  9. FAMOTIDINE. [Suspect]
     Active Substance: FAMOTIDINE
     Indication: PROPHYLAXIS
     Dosage: 80 MILLIGRAM
     Route: 048
     Dates: start: 20150616, end: 20150623
  10. SENNOSIDE [Suspect]
     Active Substance: SENNOSIDES
     Indication: PROPHYLAXIS
     Dosage: 24 MILLIGRAM
     Route: 048
     Dates: start: 20150629, end: 20150702
  11. MAGMITT [Suspect]
     Active Substance: MAGNESIUM OXIDE
     Indication: PROPHYLAXIS
     Dosage: 4500 MILLIGRAM
     Route: 048
     Dates: start: 20150629, end: 20151121
  12. ACICLOVIR [Suspect]
     Active Substance: ACYCLOVIR
     Indication: PROPHYLAXIS
     Dosage: 200 MILLIGRAM
     Route: 048
     Dates: start: 20150608, end: 20151121
  13. DIFLUCAN [Suspect]
     Active Substance: FLUCONAZOLE
     Indication: PROPHYLAXIS
     Dosage: 100 MILLIGRAM
     Route: 048
     Dates: start: 20150608, end: 20151121
  14. TEGRETOL [Suspect]
     Active Substance: CARBAMAZEPINE
     Indication: BENIGN PROSTATIC HYPERPLASIA
     Dosage: 100 MILLIGRAM
     Route: 048
     Dates: start: 20151109, end: 20151121

REACTIONS (3)
  - Dehydration [Unknown]
  - Drug eruption [Unknown]
  - Liver disorder [Recovered/Resolved]

NARRATIVE: CASE EVENT DATE: 20151121
